FAERS Safety Report 18190606 (Version 1)
Quarter: 2020Q3

REPORT INFORMATION
  Report Type: Spontaneous
  Country: US (occurrence: US)
  Receive Date: 20200824
  Receipt Date: 20200824
  Transmission Date: 20201103
  Serious: Yes (Death, Other)
  Sender: FDA-Public Use
  Company Number: US-PURDUE-USA-2020-0162424

PATIENT
  Age: 37 Year
  Sex: Male

DRUGS (4)
  1. NORDIAZEPAM [Suspect]
     Active Substance: NORDAZEPAM
     Indication: BLOOD DISORDER
     Dosage: UNK
     Route: 065
  2. OXYMORPHONE [Suspect]
     Active Substance: OXYMORPHONE
     Indication: BLOOD DISORDER
     Dosage: UNK
     Route: 065
  3. OXYCODONE HYDROCHLORIDE (SIMILAR TO NDA 22?272) [Suspect]
     Active Substance: OXYCODONE HYDROCHLORIDE
     Indication: BLOOD DISORDER
     Dosage: UNK
     Route: 048
  4. ALPRAZOLAM. [Suspect]
     Active Substance: ALPRAZOLAM
     Indication: BLOOD DISORDER
     Dosage: UNK
     Route: 065

REACTIONS (6)
  - Pulmonary fibrosis [Unknown]
  - Arteriosclerosis [Unknown]
  - Drug abuse [Unknown]
  - Drug dependence [Unknown]
  - Puncture site injury [Unknown]
  - Accidental overdose [Fatal]

NARRATIVE: CASE EVENT DATE: 20111229
